FAERS Safety Report 6322425-X (Version None)
Quarter: 2009Q3

REPORT INFORMATION
  Report Type: 
  Country: None (occurrence: None)
  Receive Date: 20090824
  Receipt Date: 20090512
  Transmission Date: 20100115
  Serious: No
  Sender: FDA-Public Use
  Company Number: US-ABBOTT-09P-163-0502812-00

PATIENT
  Sex: Female
  Weight: 108.96 kg

DRUGS (8)
  1. NIASPAN [Suspect]
     Indication: BLOOD TRIGLYCERIDES INCREASED
     Dates: start: 20090129, end: 20090129
  2. ASPIRIN [Concomitant]
     Indication: DRUG USE FOR UNKNOWN INDICATION
  3. CRESTOR [Concomitant]
     Indication: BLOOD TRIGLYCERIDES INCREASED
  4. ZINC [Concomitant]
     Indication: VITAMIN SUPPLEMENTATION
     Route: 048
  5. MAGNESIUM [Concomitant]
     Indication: PROPHYLAXIS
     Route: 048
  6. MAGNESIUM [Concomitant]
     Indication: MUSCLE SPASMS
  7. VITAMIN D [Concomitant]
     Indication: VITAMIN SUPPLEMENTATION
     Route: 048
  8. CENTRUM [Concomitant]
     Indication: VITAMIN SUPPLEMENTATION
     Route: 048

REACTIONS (9)
  - ABDOMINAL PAIN [None]
  - ASTHENIA [None]
  - BLOOD PRESSURE INCREASED [None]
  - FALL [None]
  - FEELING HOT [None]
  - MALAISE [None]
  - NAUSEA [None]
  - PAIN [None]
  - PRURITUS [None]
